FAERS Safety Report 9920818 (Version 5)
Quarter: 2014Q3

REPORT INFORMATION
  Report Type: Spontaneous
  Country: US (occurrence: US)
  Receive Date: 20140224
  Receipt Date: 20140707
  Transmission Date: 20150326
  Serious: Yes (Hospitalization, Other)
  Sender: FDA-Public Use
  Company Number: US-AMGEN-USASP2014012633

PATIENT
  Age: 46 Year
  Sex: Male
  Weight: 71 kg

DRUGS (10)
  1. REGLAN [Concomitant]
     Active Substance: METOCLOPRAMIDE HYDROCHLORIDE
     Dosage: 10 MG, THREE TIMES A DAILY WITH MEALS
     Route: 048
     Dates: start: 20130802
  2. EPOGEN [Suspect]
     Active Substance: ERYTHROPOIETIN
     Indication: RENAL FAILURE CHRONIC
     Dosage: 14300 UNIT, 3 TIMES/WK
     Route: 042
     Dates: start: 20121211
  3. BENADRYL [Concomitant]
     Active Substance: DIPHENHYDRAMINE HYDROCHLORIDE
     Indication: PRURITUS
     Dosage: 50 MG, UNK
     Route: 048
     Dates: start: 20130110
  4. HECTOROL [Concomitant]
     Active Substance: DOXERCALCIFEROL
     Dosage: 2 MUG, 2 TIMES/WK
     Route: 042
     Dates: start: 20140411
  5. ENERGIX [Concomitant]
     Dosage: 40, 3 DOSE, UNK
     Route: 030
     Dates: start: 20140321, end: 2014
  6. PROPRANOLOL [Concomitant]
     Active Substance: PROPRANOLOL\PROPRANOLOL HYDROCHLORIDE
     Dosage: 10 MG, TID
     Route: 048
     Dates: start: 20130108
  7. CALCITRIOL. [Concomitant]
     Active Substance: CALCITRIOL
     Dosage: 0.5 MG, 2 TIMES/WK
     Route: 042
     Dates: start: 20140110, end: 20140411
  8. EPOGEN [Suspect]
     Active Substance: ERYTHROPOIETIN
     Indication: NEPHROGENIC ANAEMIA
  9. VITAMIN D3 [Concomitant]
     Active Substance: CHOLECALCIFEROL
     Dosage: 2000 UNIT, BID
     Route: 048
     Dates: start: 20130802
  10. RIFAXIMIN [Concomitant]
     Active Substance: RIFAXIMIN
     Dosage: 550 MG, BID
     Route: 048
     Dates: start: 20130108

REACTIONS (10)
  - Skin lesion [Recovering/Resolving]
  - Skin haemorrhage [Recovering/Resolving]
  - Reticulocyte count decreased [Unknown]
  - Dyspnoea [Not Recovered/Not Resolved]
  - Pneumonia [Recovered/Resolved]
  - Haemoglobin decreased [Not Recovered/Not Resolved]
  - Drug resistance [Not Recovered/Not Resolved]
  - C-reactive protein abnormal [Unknown]
  - Aplasia pure red cell [Unknown]
  - Therapeutic response decreased [Not Recovered/Not Resolved]

NARRATIVE: CASE EVENT DATE: 20121215
